FAERS Safety Report 10723817 (Version 2)
Quarter: 2015Q2

REPORT INFORMATION
  Report Type: Spontaneous
  Country: US (occurrence: US)
  Receive Date: 20150120
  Receipt Date: 20150413
  Transmission Date: 20150821
  Serious: No
  Sender: FDA-Public Use
  Company Number: US-ASTRAZENECA-2015SE02351

PATIENT
  Age: 66 Year
  Sex: Female
  Weight: 118.8 kg

DRUGS (8)
  1. PULMICORT FLEXHALER [Suspect]
     Active Substance: BUDESONIDE
     Indication: BRONCHITIS
     Dosage: 180 MG 1 PUFF BID
     Route: 055
     Dates: start: 20141119, end: 20141206
  2. VENTOLIN HFA [Concomitant]
     Active Substance: ALBUTEROL SULFATE
     Indication: WHEEZING
     Route: 055
     Dates: start: 20141023
  3. MUCINEX GENERIC [Concomitant]
     Indication: CHEST DISCOMFORT
     Route: 048
     Dates: start: 201412
  4. FLEXORIL GENERIC [Concomitant]
     Indication: MUSCLE SPASMS
     Route: 048
     Dates: start: 201409
  5. ATIVAN [Concomitant]
     Active Substance: LORAZEPAM
     Indication: ANXIETY
     Route: 048
  6. LISINOPRIL. [Suspect]
     Active Substance: LISINOPRIL
     Indication: BLOOD PRESSURE ABNORMAL
     Route: 048
  7. ESTRADIOL. [Concomitant]
     Active Substance: ESTRADIOL
     Indication: HOT FLUSH
     Route: 048
     Dates: start: 201408
  8. NAPROXEN. [Concomitant]
     Active Substance: NAPROXEN
     Indication: SCIATICA
     Route: 048
     Dates: start: 2013

REACTIONS (5)
  - Bladder disorder [Unknown]
  - Product use issue [Unknown]
  - Weight increased [Unknown]
  - Cough [Unknown]
  - Drug dose omission [Unknown]

NARRATIVE: CASE EVENT DATE: 2014
